FAERS Safety Report 5967962-2 (Version None)
Quarter: 2008Q4

REPORT INFORMATION
  Report Type: 
  Country: None (occurrence: None)
  Receive Date: 20081126
  Receipt Date: 20081118
  Transmission Date: 20090506
  Serious: Yes (Hospitalization, Other)
  Sender: FDA-Public Use
  Company Number: ZA-AVENTIS-200820933GDDC

PATIENT
  Age: 25 Year
  Sex: Female

DRUGS (2)
  1. APIDRA [Suspect]
     Route: 058
  2. HUMALOG [Suspect]
     Route: 058
     Dates: end: 20081101

REACTIONS (3)
  - DRUG EXPOSURE DURING PREGNANCY [None]
  - HYPOGLYCAEMIA [None]
  - STILLBIRTH [None]
